FAERS Safety Report 8342726-3 (Version None)
Quarter: 2012Q2

REPORT INFORMATION
  Report Type: 
  Country: None (occurrence: None)
  Receive Date: 20120503
  Receipt Date: 20120410
  Transmission Date: 20120825
  Serious: Yes (Disabling, Other)
  Sender: FDA-Public Use
  Company Number: 041112-016

PATIENT
  Age: 40 Year
  Sex: Female
  Weight: 108.8633 kg

DRUGS (3)
  1. RUGBY NIACIN [Concomitant]
  2. ZOLOFT [Concomitant]
  3. LEADER RED YEAST RICE, 600MG/CAPSULE, 90 CAPSULES [Suspect]
     Indication: SUPPLEMENTATION THERAPY
     Dosage: 600MG/DAY, ORAL
     Route: 048
     Dates: start: 20120123, end: 20120124

REACTIONS (11)
  - DIARRHOEA [None]
  - FIBULA FRACTURE [None]
  - LIGAMENT SPRAIN [None]
  - DIZZINESS [None]
  - ABASIA [None]
  - PAIN IN EXTREMITY [None]
  - THIRST [None]
  - FALL [None]
  - ANKLE FRACTURE [None]
  - GASTROINTESTINAL PAIN [None]
  - FLUSHING [None]
